FAERS Safety Report 9901331 (Version 2)
Quarter: 2014Q1

REPORT INFORMATION
  Report Type: Spontaneous
  Country: US (occurrence: US)
  Receive Date: 20140217
  Receipt Date: 20140305
  Transmission Date: 20141002
  Serious: No
  Sender: FDA-Public Use
  Company Number: US-BAYER-2014-024276

PATIENT
  Age: 85 Year
  Sex: Male

DRUGS (2)
  1. ALEVE CAPLET [Suspect]
     Dosage: 1 DF, QD
     Route: 048
  2. ALEVE CAPLET [Suspect]
     Dosage: UNK
     Dates: start: 2012, end: 201209

REACTIONS (4)
  - Nasopharyngitis [None]
  - Drug ineffective [None]
  - Feeling cold [Recovered/Resolved]
  - Incorrect drug administration duration [None]
